FAERS Safety Report 8123827-1 (Version None)
Quarter: 2012Q1

REPORT INFORMATION
  Report Type: 
  Country: None (occurrence: None)
  Receive Date: 20120208
  Receipt Date: 20120130
  Transmission Date: 20120608
  Serious: Yes (Other)
  Sender: FDA-Public Use
  Company Number: ES-AMGEN-ESPSP2012007347

PATIENT
  Age: 21 Year
  Sex: Male

DRUGS (9)
  1. CALCIUM [Concomitant]
     Dosage: UNK
  2. PREDNISONE [Suspect]
     Dosage: UNK
  3. TRAMADOL HCL [Concomitant]
     Dosage: UNK
  4. METHOTREXATE [Concomitant]
     Dosage: UNK
  5. ACETAMINOPHEN [Concomitant]
     Dosage: UNK
  6. DOLQUINE [Concomitant]
     Dosage: UNK
  7. IBANDRONATE SODIUM [Concomitant]
     Dosage: UNK
  8. VITAMIN D [Concomitant]
     Dosage: UNK
  9. ENBREL [Suspect]
     Indication: RHEUMATOID ARTHRITIS
     Dosage: 50 MG, WEEKLY
     Dates: start: 20110121

REACTIONS (1)
  - OSTEONECROSIS [None]
